FAERS Safety Report 8368400-5 (Version None)
Quarter: 2012Q2

REPORT INFORMATION
  Report Type: 
  Country: None (occurrence: None)
  Receive Date: 20120517
  Receipt Date: 20120507
  Transmission Date: 20120825
  Serious: Yes (Hospitalization, Other)
  Sender: FDA-Public Use
  Company Number: US-ELI_LILLY_AND_COMPANY-US201011006055

PATIENT
  Sex: Female
  Weight: 86.168 kg

DRUGS (13)
  1. FORTEO [Suspect]
     Dosage: 20 UG, DAILY (1/D)
     Dates: start: 20120101
  2. CALCIUM [Concomitant]
  3. HUMALOG [Concomitant]
  4. TOPROL-XL [Concomitant]
  5. LANTUS [Concomitant]
  6. CYMBALTA [Concomitant]
  7. IRON [Concomitant]
  8. LYRICA [Concomitant]
  9. INSULIN [Concomitant]
  10. PLAVIX [Concomitant]
  11. LASIX [Concomitant]
  12. FORTEO [Suspect]
     Indication: OSTEOPOROSIS
     Dosage: 20 UG, DAILY (1/D)
     Route: 058
     Dates: end: 20101002
  13. NEXIUM [Concomitant]

REACTIONS (12)
  - IMPAIRED GASTRIC EMPTYING [None]
  - WOUND DRAINAGE [None]
  - FEMUR FRACTURE [None]
  - ARTHROPATHY [None]
  - FALL [None]
  - FRACTURED SACRUM [None]
  - GASTRIC DISORDER [None]
  - ERYTHEMA [None]
  - GASTROENTERITIS VIRAL [None]
  - OEDEMA PERIPHERAL [None]
  - CELLULITIS [None]
  - PELVIC FRACTURE [None]
